FAERS Safety Report 20302452 (Version 2)
Quarter: 2022Q1

REPORT INFORMATION
  Report Type: Spontaneous
  Country: CA (occurrence: CA)
  Receive Date: 20220106
  Receipt Date: 20220211
  Transmission Date: 20220423
  Serious: Yes (Other)
  Sender: FDA-Public Use
  Company Number: CA-CELLTRION INC.-2021CA017917

PATIENT

DRUGS (2)
  1. INFLECTRA [Suspect]
     Active Substance: INFLIXIMAB-DYYB
     Indication: Psoriatic arthropathy
     Dosage: 3 MG (0, 2, 6 WEEKS, THEN EVERY 8 WEEKS. NOT YET STARTED)
     Route: 042
  2. METHOTREXATE SODIUM [Suspect]
     Active Substance: METHOTREXATE SODIUM
     Dosage: 1 DF

REACTIONS (5)
  - Type 2 diabetes mellitus [Unknown]
  - Hepatic steatosis [Unknown]
  - Arthralgia [Unknown]
  - Swelling [Unknown]
  - Mobility decreased [Unknown]
